FAERS Safety Report 6896896-4 (Version None)
Quarter: 2010Q3

REPORT INFORMATION
  Report Type: 
  Country: None (occurrence: None)
  Receive Date: 20100802
  Receipt Date: 20070216
  Transmission Date: 20110219
  Serious: No
  Sender: FDA-Public Use
  Company Number: US-PFIZER INC-2007013168

PATIENT
  Sex: Female
  Weight: 88.5 kg

DRUGS (4)
  1. LYRICA [Suspect]
     Indication: BURNING SENSATION
     Dates: start: 20070215
  2. LYRICA [Suspect]
     Indication: PAIN
  3. TOPROL-XL [Concomitant]
  4. DIGOXIN [Concomitant]

REACTIONS (1)
  - LETHARGY [None]
